FAERS Safety Report 9607660 (Version 1)
Quarter: 2013Q4

REPORT INFORMATION
  Report Type: Spontaneous
  Country: US (occurrence: US)
  Receive Date: 20131009
  Receipt Date: 20131009
  Transmission Date: 20140711
  Serious: No
  Sender: FDA-Public Use
  Company Number: US-SANOFI-AVENTIS-2013SA014745

PATIENT
  Sex: Female

DRUGS (3)
  1. ARAVA [Suspect]
  2. NEXIUM [Concomitant]
  3. METOPROLOL [Concomitant]

REACTIONS (4)
  - Unevaluable event [Unknown]
  - Rheumatoid arthritis [Unknown]
  - Hypersensitivity [Unknown]
  - Cough [Unknown]
